FAERS Safety Report 7711848-X (Version None)
Quarter: 2011Q3

REPORT INFORMATION
  Report Type: 
  Country: None (occurrence: None)
  Receive Date: 20110822
  Receipt Date: 20110804
  Transmission Date: 20111222
  Serious: Yes (Hospitalization)
  Sender: FDA-Public Use
  Company Number: 2011MA011355

PATIENT
  Age: 80 Year
  Sex: Female

DRUGS (3)
  1. PROPYLTHIOURACIL [Suspect]
     Indication: HYPERTHYROIDISM
  2. HYDROCHLOROTHIAZIDE [Suspect]
     Indication: HYPERTENSION
  3. LISINOPRIL [Suspect]
     Indication: HYPERTENSION

REACTIONS (12)
  - VOMITING [None]
  - HYPONATRAEMIA [None]
  - BRAIN OEDEMA [None]
  - DIARRHOEA [None]
  - ASTHENIA [None]
  - UNRESPONSIVE TO STIMULI [None]
  - BLOOD POTASSIUM DECREASED [None]
  - SOMNOLENCE [None]
  - GAIT DISTURBANCE [None]
  - NAUSEA [None]
  - WATER INTOXICATION [None]
  - MIOSIS [None]
